FAERS Safety Report 16834229 (Version 1)
Quarter: 2019Q3

REPORT INFORMATION
  Report Type: Spontaneous
  Country: US (occurrence: US)
  Receive Date: 20190920
  Receipt Date: 20190920
  Transmission Date: 20191005
  Serious: No
  Sender: FDA-Public Use
  Company Number: US-BAUSCH-BL-2019-024581

PATIENT
  Age: 22 Year
  Sex: Female

DRUGS (2)
  1. UCERIS [Suspect]
     Active Substance: BUDESONIDE
     Indication: CROHN^S DISEASE
     Dosage: AS DESCRIBED
     Route: 048
  2. UCERIS [Suspect]
     Active Substance: BUDESONIDE
     Indication: PRODUCT USE IN UNAPPROVED INDICATION

REACTIONS (3)
  - Wrong technique in product usage process [Unknown]
  - Gastrooesophageal reflux disease [Not Recovered/Not Resolved]
  - Product use in unapproved indication [Unknown]
